FAERS Safety Report 13791240 (Version 2)
Quarter: 2017Q4

REPORT INFORMATION
  Report Type: Report from Study
  Country: US (occurrence: US)
  Receive Date: 20170725
  Receipt Date: 20171123
  Transmission Date: 20180320
  Serious: Yes (Other)
  Sender: FDA-Public Use
  Company Number: US-VIFOR (INTERNATIONAL) INC.-VIT-2017-07903

PATIENT
  Age: 75 Year
  Sex: Male
  Weight: 65.83 kg

DRUGS (16)
  1. LOSARTAN. [Concomitant]
     Active Substance: LOSARTAN
  2. XALATAN [Concomitant]
     Active Substance: LATANOPROST
     Dosage: 1 GTT O.S
  3. ZETIA [Concomitant]
     Active Substance: EZETIMIBE
  4. ALLOPURINOL. [Concomitant]
     Active Substance: ALLOPURINOL
     Route: 048
  5. CRESTOR [Concomitant]
     Active Substance: ROSUVASTATIN CALCIUM
  6. OSCAL [Concomitant]
     Active Substance: CALCIUM CARBONATE
  7. FLEXERIL [Concomitant]
     Active Substance: CYCLOBENZAPRINE HYDROCHLORIDE
  8. VELTASSA [Suspect]
     Active Substance: PATIROMER
     Indication: BLOOD POTASSIUM INCREASED
     Route: 048
     Dates: start: 201706
  9. PLAVIX [Concomitant]
     Active Substance: CLOPIDOGREL BISULFATE
  10. FUROSEMIDE. [Concomitant]
     Active Substance: FUROSEMIDE
  11. FISH OIL [Concomitant]
     Active Substance: FISH OIL
  12. TYLENOL EXTRA STRENGTH [Concomitant]
     Active Substance: ACETAMINOPHEN
     Dosage: 2 TABS
     Route: 048
  13. RENAPLEX-D [Concomitant]
     Active Substance: VITAMINS
  14. ENALAPRIL MALEATE. [Concomitant]
     Active Substance: ENALAPRIL MALEATE
  15. CARVEDILOL. [Concomitant]
     Active Substance: CARVEDILOL
  16. NEXIUM [Concomitant]
     Active Substance: ESOMEPRAZOLE MAGNESIUM

REACTIONS (1)
  - Cardiac pacemaker replacement [Recovered/Resolved]

NARRATIVE: CASE EVENT DATE: 20170718
